FAERS Safety Report 10649740 (Version 5)
Quarter: 2015Q2

REPORT INFORMATION
  Report Type: Spontaneous
  Country: US (occurrence: US)
  Receive Date: 20141212
  Receipt Date: 20150617
  Transmission Date: 20150821
  Serious: Yes (Other)
  Sender: FDA-Public Use
  Company Number: US-BAYER-2014-180359

PATIENT
  Age: 37 Year
  Sex: Female
  Weight: 77 kg

DRUGS (1)
  1. MIRENA [Suspect]
     Active Substance: LEVONORGESTREL
     Indication: CONTRACEPTION
     Dosage: 20 MCG/24HR, CONT
     Route: 015
     Dates: start: 201211, end: 20150227

REACTIONS (3)
  - Device dislocation [None]
  - Adverse event [None]
  - Embedded device [Recovered/Resolved]

NARRATIVE: CASE EVENT DATE: 20140313
